FAERS Safety Report 18606386 (Version 2)
Quarter: 2023Q1

REPORT INFORMATION
  Report Type: Spontaneous
  Country: DE (occurrence: DE)
  Receive Date: 20201211
  Receipt Date: 20230301
  Transmission Date: 20230417
  Serious: Yes (Hospitalization, Other)
  Sender: FDA-Public Use
  Company Number: DE-EMA-DD-20201126-PRABHAKAR_D-101553

PATIENT
  Age: 70 Year
  Sex: Male
  Weight: 92 kg

DRUGS (22)
  1. ETOPOSIDE [Suspect]
     Active Substance: ETOPOSIDE
     Indication: Lung neoplasm malignant
     Dosage: 120 MG/M2 DAILY;
     Route: 042
     Dates: start: 20191108, end: 20191110
  2. ETOPOSIDE [Suspect]
     Active Substance: ETOPOSIDE
     Dosage: 120 MG/M2 DAILY;
     Route: 042
     Dates: start: 20200109, end: 20200111
  3. ETOPOSIDE [Suspect]
     Active Substance: ETOPOSIDE
     Dosage: 140 MG/M2 DAILY;
     Route: 042
     Dates: start: 20190926, end: 20190928
  4. ETOPOSIDE [Suspect]
     Active Substance: ETOPOSIDE
     Dosage: 120 MG/M2 DAILY;
     Route: 042
     Dates: start: 20191018, end: 20191020
  5. ETOPOSIDE [Suspect]
     Active Substance: ETOPOSIDE
     Dosage: 120 MG/M2 DAILY;
     Route: 042
     Dates: start: 20191209, end: 20191211
  6. ETOPOSIDE [Suspect]
     Active Substance: ETOPOSIDE
     Dosage: 120 MILLIGRAM PER GRAM DAILY;
     Route: 042
     Dates: start: 20190827, end: 20190829
  7. ETOPOSIDE [Suspect]
     Active Substance: ETOPOSIDE
     Dosage: 120 MG/M2
     Route: 042
     Dates: start: 20190926, end: 20190928
  8. CARBOPLATIN [Suspect]
     Active Substance: CARBOPLATIN
     Indication: Lung neoplasm malignant
     Dosage: 5  AUC, QD
     Route: 042
     Dates: start: 20190926, end: 20190928
  9. CARBOPLATIN [Suspect]
     Active Substance: CARBOPLATIN
     Dosage: 5  AUC, QD
     Route: 042
     Dates: start: 20191018, end: 20191020
  10. CARBOPLATIN [Suspect]
     Active Substance: CARBOPLATIN
     Dosage: 6 AUC, QD
     Route: 042
     Dates: start: 20190827, end: 20190829
  11. CARBOPLATIN [Suspect]
     Active Substance: CARBOPLATIN
     Dosage: 5  AUC, QD
     Route: 042
     Dates: start: 20200109, end: 20200111
  12. CARBOPLATIN [Suspect]
     Active Substance: CARBOPLATIN
     Dosage: 5  AUC, QD
     Route: 042
     Dates: start: 20191108, end: 20191110
  13. CARBOPLATIN [Suspect]
     Active Substance: CARBOPLATIN
     Dosage: 5  AUC, QD
     Route: 042
     Dates: start: 20191209, end: 20191211
  14. ATEZOLIZUMAB [Concomitant]
     Active Substance: ATEZOLIZUMAB
     Indication: Product used for unknown indication
     Dosage: 1200 MILLIGRAM DAILY;
     Route: 065
     Dates: start: 20200207
  15. ATEZOLIZUMAB [Concomitant]
     Active Substance: ATEZOLIZUMAB
     Dosage: 1200 MILLIGRAM DAILY;
     Route: 065
     Dates: start: 20200109, end: 20200111
  16. ATEZOLIZUMAB [Concomitant]
     Active Substance: ATEZOLIZUMAB
     Dosage: 1200 MILLIGRAM DAILY;
     Route: 065
     Dates: start: 20190926, end: 20190928
  17. METOPROLOL [Concomitant]
     Active Substance: METOPROLOL
     Indication: Hypertension
     Dosage: UNK
     Route: 065
     Dates: start: 200503
  18. ASPIRIN [Concomitant]
     Active Substance: ASPIRIN
     Indication: Product used for unknown indication
     Dosage: UNK
     Route: 065
     Dates: start: 200503
  19. ENALAPRIL [Concomitant]
     Active Substance: ENALAPRIL
     Indication: Hypertension
     Dosage: UNK
     Route: 065
     Dates: start: 200503
  20. LEVOTHYROXINE SODIUM [Concomitant]
     Active Substance: LEVOTHYROXINE SODIUM
     Indication: Hypothyroidism
     Dosage: UNK
     Route: 065
     Dates: start: 2004
  21. EZETIMIBE [Concomitant]
     Active Substance: EZETIMIBE
     Indication: Hyperlipidaemia
     Dosage: UNK
     Route: 065
     Dates: start: 201311
  22. SIMVASTATIN [Concomitant]
     Active Substance: SIMVASTATIN
     Indication: Hyperlipidaemia
     Dosage: UNK
     Route: 065
     Dates: start: 201311

REACTIONS (2)
  - Pancytopenia [Recovered/Resolved]
  - Pyrexia [Unknown]

NARRATIVE: CASE EVENT DATE: 20190906
